FAERS Safety Report 25753703 (Version 1)
Quarter: 2025Q3

REPORT INFORMATION
  Report Type: Spontaneous
  Country: EU (occurrence: EU)
  Receive Date: 20250903
  Receipt Date: 20250903
  Transmission Date: 20251021
  Serious: Yes (Other)
  Sender: CHEPLAPHARM
  Company Number: None

PATIENT
  Age: 34 Year
  Sex: Male

DRUGS (4)
  1. CLONAZEPAM [Suspect]
     Active Substance: CLONAZEPAM
  2. CANNABIS SATIVA SUBSP. INDICA TOP [Suspect]
     Active Substance: CANNABIS SATIVA SUBSP. INDICA TOP
  3. COCAINE [Suspect]
     Active Substance: COCAINE
  4. DIAZEPAM [Suspect]
     Active Substance: DIAZEPAM

REACTIONS (4)
  - Substance use disorder [Unknown]
  - Coma [Recovered/Resolved]
  - Vomiting [Recovered/Resolved]
  - Bronchopneumopathy [Unknown]

NARRATIVE: CASE EVENT DATE: 20250320
